FAERS Safety Report 25475031 (Version 3)
Quarter: 2025Q3

REPORT INFORMATION
  Report Type: Spontaneous
  Country: US (occurrence: US)
  Receive Date: 20250624
  Receipt Date: 20250701
  Transmission Date: 20251021
  Serious: Yes (Other)
  Sender: Haleon PLC
  Company Number: US-HALEON-2248769

PATIENT

DRUGS (1)
  1. TUMS CHEWY BITES [Suspect]
     Active Substance: CALCIUM CARBONATE
     Indication: Product used for unknown indication

REACTIONS (2)
  - Choking [Unknown]
  - Product contamination physical [Unknown]
